FAERS Safety Report 15229398 (Version 2)
Quarter: 2018Q4

REPORT INFORMATION
  Report Type: Other
  Country: IT (occurrence: IT)
  Receive Date: 20180801
  Receipt Date: 20181004
  Transmission Date: 20190204
  Serious: Yes (Hospitalization)
  Sender: FDA-Public Use
  Company Number: IT-MACLEODS PHARMACEUTICALS US LTD-MAC2018015733

PATIENT

DRUGS (1)
  1. VALSARTAN 40 MG [Suspect]
     Active Substance: VALSARTAN
     Indication: HYPERTENSION
     Dosage: 40 MILLIGRAM, QD
     Route: 048
     Dates: end: 20180715

REACTIONS (4)
  - Malaise [Unknown]
  - Apraxia [Unknown]
  - Hyponatraemia [Unknown]
  - Decreased appetite [Unknown]

NARRATIVE: CASE EVENT DATE: 20180715
